FAERS Safety Report 5390856-0 (Version None)
Quarter: 2007Q3

REPORT INFORMATION
  Report Type: 
  Country: None (occurrence: None)
  Receive Date: 20070716
  Receipt Date: 20070709
  Transmission Date: 20080115
  Serious: Yes (Hospitalization)
  Sender: FDA-Public Use
  Company Number: 430005E07DEU

PATIENT
  Age: 72 Year
  Sex: Male

DRUGS (3)
  1. NOVANTRONE [Suspect]
     Dosage: 13 MG, ONCE
     Dates: start: 20051229, end: 20060102
  2. CYTARABINE [Suspect]
     Dosage: 188 MG, ONCE
     Dates: start: 20051229, end: 20060104
  3. ETOPOSIDE [Suspect]
     Dosage: 188 MG, ONCE
     Dates: start: 20051229, end: 20051231

REACTIONS (2)
  - CANDIDIASIS [None]
  - ENTEROCOCCAL INFECTION [None]
